FAERS Safety Report 24780903 (Version 1)
Quarter: 2024Q4

REPORT INFORMATION
  Report Type: Spontaneous
  Country: GB (occurrence: GB)
  Receive Date: 20241227
  Receipt Date: 20241227
  Transmission Date: 20250115
  Serious: Yes (Other)
  Sender: CSL BEHRING
  Company Number: GB-BEH-2024183221

PATIENT
  Sex: Female

DRUGS (1)
  1. PRIVIGEN [Suspect]
     Active Substance: HUMAN IMMUNOGLOBULIN G
     Indication: Immunodeficiency common variable
     Dosage: 35 G, Q3W, PRODUCT STRENGTH REPORTED AS 10 %
     Route: 042

REACTIONS (2)
  - Immunodeficiency [Unknown]
  - Immunoglobulins decreased [Unknown]
